FAERS Safety Report 18945300 (Version 3)
Quarter: 2021Q1

REPORT INFORMATION
  Report Type: Report from Study
  Country: KR (occurrence: KR)
  Receive Date: 20210226
  Receipt Date: 20210329
  Transmission Date: 20210420
  Serious: Yes (Other)
  Sender: FDA-Public Use
  Company Number: KR-ASTELLAS-2021US006738

PATIENT
  Age: 77 Year
  Sex: Male

DRUGS (6)
  1. DICAMAX [Concomitant]
     Indication: PROPHYLAXIS
     Route: 048
  2. KANARB [Concomitant]
     Indication: HYPERTENSION
     Route: 048
  3. ENZALUTAMIDE [Suspect]
     Active Substance: ENZALUTAMIDE
     Indication: HORMONE-REFRACTORY PROSTATE CANCER
     Route: 048
     Dates: start: 20200723, end: 20201004
  4. THRUPASS ODT [Concomitant]
     Indication: PROPHYLAXIS
     Route: 048
  5. KABALIN [Concomitant]
     Indication: PROPHYLAXIS
     Route: 048
  6. HINECHOL [Concomitant]
     Indication: PROPHYLAXIS
     Route: 048

REACTIONS (1)
  - Platelet count decreased [Not Recovered/Not Resolved]

NARRATIVE: CASE EVENT DATE: 20201005
